FAERS Safety Report 4803287-6 (Version None)
Quarter: 2005Q4

REPORT INFORMATION
  Report Type: 
  Country: None (occurrence: None)
  Receive Date: 20051013
  Receipt Date: 20051005
  Transmission Date: 20060501
  Serious: Yes (Other)
  Sender: FDA-Public Use
  Company Number: 2005138684

PATIENT
  Age: 58 Year
  Sex: Male
  Weight: 142.8831 kg

DRUGS (3)
  1. LIPITOR [Suspect]
     Indication: BLOOD CHOLESTEROL INCREASED
     Dosage: 20 MG (20 MG, 1 IN 1 D),
     Dates: start: 20010101
  2. METFORMIN (METFORMIN) [Concomitant]
  3. GLYBURIDE [Concomitant]

REACTIONS (6)
  - ACCIDENT AT WORK [None]
  - AORTIC CALCIFICATION [None]
  - BACK INJURY [None]
  - CORONARY ARTERY OCCLUSION [None]
  - DYSPNOEA EXERTIONAL [None]
  - POSTOPERATIVE INFECTION [None]
